FAERS Safety Report 19646112 (Version 2)
Quarter: 2022Q1

REPORT INFORMATION
  Report Type: Spontaneous
  Country: US (occurrence: US)
  Receive Date: 20210802
  Receipt Date: 20220128
  Transmission Date: 20220423
  Serious: Yes (Death, Other)
  Sender: FDA-Public Use
  Company Number: US-GLAXOSMITHKLINE-US2021GSK163956

PATIENT
  Sex: Male

DRUGS (12)
  1. ZANTAC [Suspect]
     Active Substance: RANITIDINE HYDROCHLORIDE
     Indication: Ulcer haemorrhage
     Dosage: 75 MG
     Dates: start: 198501, end: 199501
  2. ZANTAC [Suspect]
     Active Substance: RANITIDINE HYDROCHLORIDE
     Indication: Dyspepsia
     Dosage: 150 MG
     Dates: start: 198501, end: 199501
  3. ZANTAC [Suspect]
     Active Substance: RANITIDINE HYDROCHLORIDE
     Indication: Barrett^s oesophagus
     Dosage: UNK UNK, QD
     Dates: start: 1985, end: 1997
  4. ZANTAC [Suspect]
     Active Substance: RANITIDINE HYDROCHLORIDE
     Indication: Ulcer haemorrhage
     Dosage: 75 MG
     Dates: start: 198501, end: 199501
  5. ZANTAC [Suspect]
     Active Substance: RANITIDINE HYDROCHLORIDE
     Indication: Dyspepsia
     Dosage: 150 MG
     Dates: start: 198501, end: 199501
  6. ZANTAC [Suspect]
     Active Substance: RANITIDINE HYDROCHLORIDE
     Indication: Barrett^s oesophagus
     Dosage: UNK UNK, QD
     Dates: start: 1985, end: 1997
  7. RANITIDINE HYDROCHLORIDE [Suspect]
     Active Substance: RANITIDINE HYDROCHLORIDE
     Indication: Ulcer haemorrhage
     Dosage: UNK UNK, QD
     Dates: start: 1985, end: 1997
  8. RANITIDINE HYDROCHLORIDE [Suspect]
     Active Substance: RANITIDINE HYDROCHLORIDE
     Indication: Dyspepsia
  9. RANITIDINE HYDROCHLORIDE [Suspect]
     Active Substance: RANITIDINE HYDROCHLORIDE
     Indication: Barrett^s oesophagus
  10. RANITIDINE HYDROCHLORIDE [Suspect]
     Active Substance: RANITIDINE HYDROCHLORIDE
     Indication: Ulcer haemorrhage
     Dosage: UNK UNK, QD
     Dates: start: 1985, end: 1997
  11. RANITIDINE HYDROCHLORIDE [Suspect]
     Active Substance: RANITIDINE HYDROCHLORIDE
     Indication: Dyspepsia
  12. RANITIDINE HYDROCHLORIDE [Suspect]
     Active Substance: RANITIDINE HYDROCHLORIDE
     Indication: Barrett^s oesophagus

REACTIONS (30)
  - Metastatic carcinoma of the bladder [Fatal]
  - Cardio-respiratory arrest [Fatal]
  - Bladder cancer [Unknown]
  - Renal cancer [Unknown]
  - Nephrolithiasis [Unknown]
  - Renal failure [Unknown]
  - Chronic kidney disease [Unknown]
  - Renal cell carcinoma [Unknown]
  - Transitional cell cancer of the renal pelvis and ureter [Unknown]
  - Transitional cell carcinoma [Unknown]
  - Nephrocalcinosis [Unknown]
  - Bladder hypertrophy [Unknown]
  - Ureteric cancer [Unknown]
  - Bladder transitional cell carcinoma [Unknown]
  - Renal cyst [Unknown]
  - Proteinuria [Unknown]
  - Bladder neoplasm [Unknown]
  - Ureteric dilatation [Unknown]
  - Single functional kidney [Unknown]
  - Ureteral neoplasm [Unknown]
  - Haematuria [Unknown]
  - Urinary tract neoplasm [Unknown]
  - Benign neoplasm of bladder [Unknown]
  - Nocturia [Unknown]
  - Bladder mass [Unknown]
  - Urge incontinence [Unknown]
  - Pollakiuria [Unknown]
  - Micturition urgency [Unknown]
  - Nephropathy [Unknown]
  - Benign prostatic hyperplasia [Unknown]
